FAERS Safety Report 19226620 (Version 1)
Quarter: 2021Q2

REPORT INFORMATION
  Report Type: Spontaneous
  Country: US (occurrence: US)
  Receive Date: 20210505
  Receipt Date: 20210505
  Transmission Date: 20210717
  Serious: No
  Sender: FDA-Public Use
  Company Number: US-ROCHE-2566639

PATIENT
  Sex: Female

DRUGS (2)
  1. FISH OIL [Concomitant]
     Active Substance: FISH OIL
  2. ESBRIET [Suspect]
     Active Substance: PIRFENIDONE
     Indication: PULMONARY FIBROSIS
     Route: 048
     Dates: start: 201910

REACTIONS (5)
  - Somnolence [Unknown]
  - Fatigue [Unknown]
  - Depression [Unknown]
  - Dizziness [Unknown]
  - Pain in extremity [Unknown]
